FAERS Safety Report 12072233 (Version 1)
Quarter: 2016Q1

REPORT INFORMATION
  Report Type: Spontaneous
  Country: US (occurrence: None)
  Receive Date: 20160211
  Receipt Date: 20160211
  Transmission Date: 20160526
  Serious: No
  Sender: FDA-Public Use
  Company Number: None

PATIENT
  Age: 34 Year
  Sex: Male

DRUGS (8)
  1. DEXLANT [Concomitant]
  2. CRESEMBA [Suspect]
     Active Substance: ISAVUCONAZONIUM SULFATE
     Indication: FUNGAL INFECTION
     Route: 048
     Dates: start: 20151105
  3. CRESEMBA [Suspect]
     Active Substance: ISAVUCONAZONIUM SULFATE
  4. AZITHROMY [Concomitant]
  5. ADVIAR [Concomitant]
  6. LISINOPR/HCTZ [Concomitant]
  7. TUDORZA PRESSAIR [Concomitant]
     Active Substance: ACLIDINIUM BROMIDE
  8. LEVOTHYROXIN [Concomitant]
     Active Substance: LEVOTHYROXINE

REACTIONS (3)
  - Gastrooesophageal reflux disease [None]
  - Visual acuity reduced [None]
  - Nausea [None]

NARRATIVE: CASE EVENT DATE: 20151120
